FAERS Safety Report 18097255 (Version 1)
Quarter: 2020Q3

REPORT INFORMATION
  Report Type: Spontaneous
  Country: BR (occurrence: BR)
  Receive Date: 20200730
  Receipt Date: 20200730
  Transmission Date: 20201103
  Serious: Yes (Other)
  Sender: FDA-Public Use
  Company Number: BR-US-PROVELL PHARMACEUTICALS LLC-9177170

PATIENT
  Age: 54 Year
  Sex: Female

DRUGS (5)
  1. LEVOTHYROXINE SODIUM. [Suspect]
     Active Substance: LEVOTHYROXINE SODIUM
     Dosage: 1 TABLET PER DAY ON AN EMPTY STOMACH
     Route: 048
     Dates: start: 20200722
  2. ATENOLOL. [Concomitant]
     Active Substance: ATENOLOL
     Indication: PRODUCT USED FOR UNKNOWN INDICATION
  3. SIMVASTATIN. [Concomitant]
     Active Substance: SIMVASTATIN
     Indication: PRODUCT USED FOR UNKNOWN INDICATION
  4. LEVOTHYROXINE SODIUM. [Suspect]
     Active Substance: LEVOTHYROXINE SODIUM
     Indication: HYPOTHYROIDISM
     Route: 048
     Dates: start: 2019
  5. WARFARIN [Concomitant]
     Active Substance: WARFARIN
     Indication: ANTICOAGULANT THERAPY

REACTIONS (6)
  - Hypothyroidism [Unknown]
  - Visual impairment [Unknown]
  - Pain in extremity [Unknown]
  - Blood lactate dehydrogenase increased [Unknown]
  - Headache [Recovering/Resolving]
  - Blood disorder [Unknown]

NARRATIVE: CASE EVENT DATE: 20200722
